FAERS Safety Report 24537320 (Version 1)
Quarter: 2024Q4

REPORT INFORMATION
  Report Type: Spontaneous
  Country: AR (occurrence: AR)
  Receive Date: 20241022
  Receipt Date: 20241022
  Transmission Date: 20250115
  Serious: Yes (Hospitalization)
  Sender: MERCK
  Company Number: AR-009507513-2410ARG009819

PATIENT
  Age: 76 Year
  Sex: Male

DRUGS (1)
  1. PEMBROLIZUMAB [Suspect]
     Active Substance: PEMBROLIZUMAB
     Indication: Malignant melanoma
     Dates: start: 202409

REACTIONS (8)
  - Neck pain [Unknown]
  - Eyelid disorder [Unknown]
  - Arthropathy [Unknown]
  - Diplopia [Unknown]
  - Headache [Recovered/Resolved]
  - Aspartate aminotransferase increased [Unknown]
  - Prothrombin time abnormal [Unknown]
  - Alanine aminotransferase increased [Unknown]

NARRATIVE: CASE EVENT DATE: 20240101
